FAERS Safety Report 14181886 (Version 1)
Quarter: 2017Q4

REPORT INFORMATION
  Report Type: Report from Study
  Country: CA (occurrence: CA)
  Receive Date: 20171113
  Receipt Date: 20171113
  Transmission Date: 20180321
  Serious: Yes (Other)
  Sender: FDA-Public Use
  Company Number: CA-AMGEN-CANSL2017168827

PATIENT
  Age: 54 Year
  Sex: Male

DRUGS (8)
  1. METHOTREXATE. [Concomitant]
     Active Substance: METHOTREXATE
     Dosage: 7.5 MG, QWK
     Route: 048
  2. METFORMIN [Concomitant]
     Active Substance: METFORMIN HYDROCHLORIDE
     Dosage: 500 MG, HALF TABLET BID
  3. ENBREL [Suspect]
     Active Substance: ETANERCEPT
     Indication: PSORIATIC ARTHROPATHY
     Dosage: 50 MG, QWK
     Route: 058
     Dates: start: 20070122
  4. ENBREL [Suspect]
     Active Substance: ETANERCEPT
     Indication: PSORIASIS
  5. NAPROXEN. [Concomitant]
     Active Substance: NAPROXEN
     Dosage: 500MG PRN RARELY (1 PER 2-4 WEEKS)
  6. FOLIC ACID. [Concomitant]
     Active Substance: FOLIC ACID
     Dosage: 500 MG, QWK
  7. DOVOBET [Concomitant]
     Active Substance: BETAMETHASONE\CALCIPOTRIENE
     Dosage: DIE
  8. ATORVASTATIN [Concomitant]
     Active Substance: ATORVASTATIN
     Dosage: 20 MG, DIE

REACTIONS (3)
  - Psoriatic arthropathy [Unknown]
  - Diabetes mellitus [Unknown]
  - Dyslipidaemia [Unknown]
